FAERS Safety Report 21556070 (Version 2)
Quarter: 2022Q4

REPORT INFORMATION
  Report Type: Spontaneous
  Country: DE (occurrence: DE)
  Receive Date: 20221104
  Receipt Date: 20221227
  Transmission Date: 20230113
  Serious: Yes (Other)
  Sender: FDA-Public Use
  Company Number: DE-PFIZER INC-202201271250

PATIENT
  Age: 59 Year
  Sex: Male
  Weight: 70 kg

DRUGS (4)
  1. LORLATINIB [Suspect]
     Active Substance: LORLATINIB
     Indication: Non-small cell lung cancer
     Dosage: 100 MG, 1X/DAY
     Route: 048
     Dates: start: 202204
  2. LORLATINIB [Suspect]
     Active Substance: LORLATINIB
     Dosage: 75 MG, 1X/DAY
     Dates: start: 20221031
  3. XGEVA [Concomitant]
     Active Substance: DENOSUMAB
     Dosage: 120 MG 3-WEEKLY
     Dates: start: 202103
  4. CA + D3 [Concomitant]
     Dosage: 1 DF, 1X/DAY
     Dates: start: 202103

REACTIONS (1)
  - Dry age-related macular degeneration [Unknown]
